FAERS Safety Report 21985972 (Version 1)
Quarter: 2023Q1

REPORT INFORMATION
  Report Type: Spontaneous
  Country: US (occurrence: None)
  Receive Date: 20230211
  Receipt Date: 20230211
  Transmission Date: 20230417
  Serious: Yes (Disabling, Other)
  Sender: FDA-Public Use
  Company Number: None

PATIENT
  Age: 18 Year
  Sex: Male
  Weight: 86.4 kg

DRUGS (4)
  1. SERTRALINE HYDROCHLORIDE [Suspect]
     Active Substance: SERTRALINE HYDROCHLORIDE
     Indication: Anxiety
     Dosage: OTHER QUANTITY : 135 TABLET(S);?
     Route: 048
     Dates: start: 20221001, end: 20221201
  2. SERTRALINE HYDROCHLORIDE [Suspect]
     Active Substance: SERTRALINE HYDROCHLORIDE
     Indication: Depression
  3. VITAMIN B [Concomitant]
     Active Substance: VITAMIN B
  4. allegra (allergy) [Concomitant]

REACTIONS (7)
  - Product substitution issue [None]
  - Withdrawal syndrome [None]
  - Vertigo [None]
  - Depression [None]
  - Anxiety [None]
  - Therapy cessation [None]
  - Therapeutic product effect incomplete [None]

NARRATIVE: CASE EVENT DATE: 20221001
